FAERS Safety Report 5291039-5 (Version None)
Quarter: 2007Q2

REPORT INFORMATION
  Report Type: 
  Country: None (occurrence: None)
  Receive Date: 20070409
  Receipt Date: 20070330
  Transmission Date: 20071010
  Serious: Yes (Hospitalization)
  Sender: FDA-Public Use
  Company Number: US-AVENTIS-200711700EU

PATIENT
  Age: 56 Year
  Sex: Female

DRUGS (14)
  1. LASIX [Suspect]
  2. PROCRIT [Suspect]
     Indication: NEPHROGENIC ANAEMIA
  3. COREG [Suspect]
  4. AVAPRO [Suspect]
  5. IRON SULFATETHIAMIN COMPOUND TAB [Concomitant]
  6. PREMARIN [Concomitant]
  7. METOLAZONE [Concomitant]
  8. ETODOLAC [Concomitant]
  9. PREVACID [Concomitant]
  10. LISINOPRIL [Concomitant]
  11. ZOLOFT [Concomitant]
  12. XANAX [Concomitant]
  13. POTASSIUM ACETATE [Concomitant]
  14. DIGITEK [Concomitant]

REACTIONS (1)
  - SYNCOPE [None]
